FAERS Safety Report 16863404 (Version 1)
Quarter: 2019Q3

REPORT INFORMATION
  Report Type: Spontaneous
  Country: US (occurrence: US)
  Receive Date: 20190927
  Receipt Date: 20190927
  Transmission Date: 20191005
  Serious: No
  Sender: FDA-Public Use
  Company Number: US-SA-2019SA268771

PATIENT
  Sex: Female

DRUGS (11)
  1. DEXILANT [Concomitant]
     Active Substance: DEXLANSOPRAZOLE
  2. RIFAMPIN. [Concomitant]
     Active Substance: RIFAMPIN
  3. SODIUM [Concomitant]
     Active Substance: SODIUM
  4. GABAPENTIN. [Concomitant]
     Active Substance: GABAPENTIN
  5. MYRBETRIQ [Concomitant]
     Active Substance: MIRABEGRON
  6. PRAVASTATIN. [Concomitant]
     Active Substance: PRAVASTATIN
  7. PREMARIN [Concomitant]
     Active Substance: ESTROGENS, CONJUGATED
  8. KEVZARA [Suspect]
     Active Substance: SARILUMAB
     Dosage: 200 MG, QOW
     Route: 058
  9. MOBIC [Concomitant]
     Active Substance: MELOXICAM
  10. LEVOTHYROXINE SODIUM. [Concomitant]
     Active Substance: LEVOTHYROXINE SODIUM
  11. SUPREP BOWEL PREP [Concomitant]
     Active Substance: MAGNESIUM SULFATE\POTASSIUM SULFATE\SODIUM SULFATE

REACTIONS (1)
  - Oral mucosal blistering [Unknown]
